FAERS Safety Report 9760397 (Version 2)
Quarter: 2015Q3

REPORT INFORMATION
  Report Type: Spontaneous
  Country: US (occurrence: US)
  Receive Date: 20131216
  Receipt Date: 20150806
  Transmission Date: 20151125
  Serious: No
  Sender: FDA-Public Use
  Company Number: US-GILEAD-2010-0029326

PATIENT
  Age: 58 Year
  Sex: Female

DRUGS (9)
  1. LETAIRIS [Suspect]
     Active Substance: AMBRISENTAN
     Indication: PULMONARY ARTERIAL HYPERTENSION
     Route: 048
     Dates: start: 20081208
  2. COUMADIN [Concomitant]
     Active Substance: WARFARIN SODIUM
  3. PROTONIX [Concomitant]
     Active Substance: PANTOPRAZOLE SODIUM
  4. ADVAIR HFA [Concomitant]
     Active Substance: FLUTICASONE PROPIONATE\SALMETEROL XINAFOATE
  5. BUMEX [Concomitant]
     Active Substance: BUMETANIDE
  6. MELLARIL [Concomitant]
     Active Substance: THIORIDAZINE HYDROCHLORIDE
  7. RESTORIL [Concomitant]
     Active Substance: TEMAZEPAM
  8. ADVIL [Concomitant]
     Active Substance: IBUPROFEN
  9. ZOCOR [Concomitant]
     Active Substance: SIMVASTATIN

REACTIONS (1)
  - Syncope [Unknown]
